FAERS Safety Report 8006651 (Version 2)
Quarter: 2012Q4

REPORT INFORMATION
  Report Type: Spontaneous
  Country: US (occurrence: None)
  Receive Date: 20110607
  Receipt Date: 20120927
  Transmission Date: 20130627
  Serious: Yes (Other)
  Sender: FDA-Public Use
  Company Number: 2011MA006278

PATIENT
  Sex: Female
  Weight: 133.81 kg

DRUGS (11)
  1. METOCLOPRAMIDE [Suspect]
     Indication: GERD
     Dates: start: 2000, end: 201006
  2. ATENOLOL [Concomitant]
  3. COUMADIN [Concomitant]
  4. ENALAPRIL [Concomitant]
  5. KLONOPIN [Concomitant]
  6. NEXIUM [Concomitant]
  7. NYSTATIN [Concomitant]
  8. ULTRAM [Concomitant]
  9. VISTARIL [Concomitant]
  10. ZANTAC [Concomitant]
  11. ZOLOFT [Concomitant]

REACTIONS (6)
  - Tardive dyskinesia [None]
  - Family stress [None]
  - Emotional disorder [None]
  - Dry mouth [None]
  - Tardive dyskinesia [None]
  - Oral candidiasis [None]
